FAERS Safety Report 12969539 (Version 1)
Quarter: 2016Q4

REPORT INFORMATION
  Report Type: Report from Study
  Country: ES (occurrence: ES)
  Receive Date: 20161123
  Receipt Date: 20161123
  Transmission Date: 20170207
  Serious: Yes (Other)
  Sender: FDA-Public Use
  Company Number: ES-MYLANLABS-2016M1051076

PATIENT

DRUGS (6)
  1. CYCLOPHOSPHAMIDE. [Concomitant]
     Active Substance: CYCLOPHOSPHAMIDE
     Indication: NON-HODGKIN^S LYMPHOMA
     Dosage: FIRST CYCLE OF THE REGIMEN
     Route: 065
  2. METHOTREXATE. [Concomitant]
     Active Substance: METHOTREXATE
     Indication: NON-HODGKIN^S LYMPHOMA
     Route: 065
  3. DOXORUBICIN [Concomitant]
     Active Substance: DOXORUBICIN
     Indication: NON-HODGKIN^S LYMPHOMA
     Dosage: FIRST CYCLE OF THE REGIMEN
     Route: 065
  4. DEXAMETHASONE. [Concomitant]
     Active Substance: DEXAMETHASONE
     Indication: NON-HODGKIN^S LYMPHOMA
     Dosage: FIRST CYCLE OF THE REGIMEN
     Route: 065
  5. CYTARABINE. [Suspect]
     Active Substance: CYTARABINE
     Indication: NON-HODGKIN^S LYMPHOMA
     Dosage: 3 G/M2/12H DURING DAYS 2 AND 3 (12 G/M2/CYCLE); CUMULATIVE DOSE TO REACTION ONSET 24 G/M2
     Route: 065
  6. VINCRISTINE [Concomitant]
     Active Substance: VINCRISTINE
     Indication: NON-HODGKIN^S LYMPHOMA
     Dosage: FIRST CYCLE OF THE REGIMEN
     Route: 065

REACTIONS (11)
  - Ataxia [Unknown]
  - Dysarthria [Unknown]
  - Dysmetria [Unknown]
  - Dysphagia [Unknown]
  - Toxicity to various agents [Unknown]
  - Depressed level of consciousness [Unknown]
  - Hepatic function abnormal [Unknown]
  - Cerebellar syndrome [Unknown]
  - Vomiting [Unknown]
  - Nystagmus [Unknown]
  - Somnolence [Unknown]
